FAERS Safety Report 20862026 (Version 1)
Quarter: 2022Q2

REPORT INFORMATION
  Report Type: Spontaneous
  Country: US (occurrence: None)
  Receive Date: 20220521
  Receipt Date: 20220521
  Transmission Date: 20220720
  Serious: Yes (Hospitalization)
  Sender: FDA-Public Use
  Company Number: None

PATIENT
  Sex: Female

DRUGS (8)
  1. IBRANCE [Suspect]
     Active Substance: PALBOCICLIB
     Indication: Malignant nipple neoplasm
     Dosage: FREQUENCY : DAILY;?
     Route: 048
  2. LETROZOLE [Suspect]
     Active Substance: LETROZOLE
     Dosage: FREQUENCY : DAILY;?
     Route: 048
  3. ATORVASTATIN 40 MG TAB [Concomitant]
  4. DEXAMETHASONE [Concomitant]
     Active Substance: DEXAMETHASONE
  5. GLIPIZIDE 10 MG TAB [Concomitant]
  6. METFORMIN 1000 MG TAB [Concomitant]
  7. PROCHLORPERAZINE TAB [Concomitant]
  8. ZOFRAN 8 MG TAB [Concomitant]

REACTIONS (2)
  - Asthenia [None]
  - Speech disorder [None]
